FAERS Safety Report 6120385-8 (Version None)
Quarter: 2009Q1

REPORT INFORMATION
  Report Type: 
  Country: None (occurrence: None)
  Receive Date: 20090316
  Receipt Date: 20090316
  Transmission Date: 20090719
  Serious: Yes (Life-Threatening, Hospitalization, Other)
  Sender: FDA-Public Use
  Company Number: None

PATIENT
  Age: 50 Year
  Sex: Male
  Weight: 77.1115 kg

DRUGS (1)
  1. THROMBIN LOCAL SOLUTION [Suspect]
     Indication: EPISTAXIS
     Dosage: 1 VIAL ONE NASAL
     Route: 045
     Dates: start: 20090312, end: 20090312

REACTIONS (3)
  - ACUTE MYOCARDIAL INFARCTION [None]
  - PROCEDURAL PAIN [None]
  - THROMBOSIS IN DEVICE [None]
